FAERS Safety Report 10369210 (Version 1)
Quarter: 2014Q1

REPORT INFORMATION
  Report Type: Spontaneous
  Country: US (occurrence: None)
  Receive Date: 20140306
  Receipt Date: 20140306
  Transmission Date: 20141002
  Serious: Yes (Hospitalization, Other)
  Sender: FDA-Public Use
  Company Number: 163-21880-13090699

PATIENT
  Age: 81 Year
  Sex: Male
  Weight: 74.84 kg

DRUGS (9)
  1. REVLIMID (LENALIDOMIDE) (10 MILLIGRAM, CAPSULES) [Suspect]
     Indication: PLASMA CELL MYELOMA
     Dosage: 08-JUN-2013 - TEMPORARILY INTERRUPTED
     Route: 048
     Dates: start: 20130608
  2. FINASTERIDE (FINASTERIDE) (UNKNOWN) [Concomitant]
  3. QUINAPRIL (QUINAPRIL) (UNKNOWN) [Concomitant]
  4. LASIX (FUROSEMIDE) (UNKNOWN) [Concomitant]
  5. KLOR-CON (POTASSIUM CHLORIDE) (UNKNOWN) [Concomitant]
  6. OXYCODONE (OXYCODONE) (UNKNOWN) (OXYCODONE) [Concomitant]
  7. IBUPROFEN (IBUPROFIN) (UNKNOWN) [Concomitant]
  8. VERAPAMIL (VERAPAMIL) (UNKNOWN) [Concomitant]
  9. ASA (ACETYLSALICYLIC ACID) (UNKNOWN) [Concomitant]

REACTIONS (1)
  - Small intestinal obstruction [None]
